FAERS Safety Report 22770168 (Version 3)
Quarter: 2024Q2

REPORT INFORMATION
  Report Type: Spontaneous
  Country: US (occurrence: US)
  Receive Date: 20230801
  Receipt Date: 20240419
  Transmission Date: 20240715
  Serious: No
  Sender: FDA-Public Use
  Company Number: US-ELI_LILLY_AND_COMPANY-US202307013776

PATIENT
  Age: 76 Year
  Sex: Male

DRUGS (5)
  1. RETEVMO [Suspect]
     Active Substance: SELPERCATINIB
     Indication: Non-small cell lung cancer
     Dosage: 80 MG, BID (2 CAPSULES)
     Route: 048
     Dates: start: 20230314
  2. RETEVMO [Suspect]
     Active Substance: SELPERCATINIB
     Dosage: 160 MG, BID ( 4 CAPSULES)
     Route: 048
     Dates: start: 20230321
  3. RETEVMO [Suspect]
     Active Substance: SELPERCATINIB
     Dosage: 80 MG, TID ( 3 CAPSULES)
     Route: 048
     Dates: start: 20230612
  4. RETEVMO [Suspect]
     Active Substance: SELPERCATINIB
     Dosage: 80 MG, BID (2 CAPSULES)
     Route: 048
  5. RETEVMO [Suspect]
     Active Substance: SELPERCATINIB
     Dosage: 80 MG, BID (2 CAPSULES)
     Route: 048

REACTIONS (5)
  - Gastritis [Not Recovered/Not Resolved]
  - Abdominal distension [Unknown]
  - Red blood cell count decreased [Unknown]
  - Abdominal pain upper [Unknown]
  - Constipation [Unknown]

NARRATIVE: CASE EVENT DATE: 20230501
